FAERS Safety Report 18098224 (Version 3)
Quarter: 2021Q3

REPORT INFORMATION
  Report Type: Spontaneous
  Country: US (occurrence: US)
  Receive Date: 20200731
  Receipt Date: 20210715
  Transmission Date: 20211014
  Serious: Yes (Other)
  Sender: FDA-Public Use
  Company Number: US-GILEAD-2020-0487204

PATIENT
  Age: 51 Year
  Sex: Male

DRUGS (3)
  1. TRUVADA [Suspect]
     Active Substance: EMTRICITABINE\TENOFOVIR DISOPROXIL FUMARATE
     Indication: HIV INFECTION
     Dosage: UNK
     Route: 048
     Dates: start: 2012, end: 2017
  2. DESCOVY [Concomitant]
     Active Substance: EMTRICITABINE\TENOFOVIR ALAFENAMIDE FUMARATE
  3. TRUVADA [Suspect]
     Active Substance: EMTRICITABINE\TENOFOVIR DISOPROXIL FUMARATE
     Dosage: UNK
     Route: 048
     Dates: start: 20110729, end: 20170318

REACTIONS (13)
  - Hand fracture [Recovered/Resolved]
  - Bone loss [Unknown]
  - Chronic kidney disease [Not Recovered/Not Resolved]
  - Congenital renal disorder [Unknown]
  - Multiple fractures [Unknown]
  - Osteoporosis [Not Recovered/Not Resolved]
  - Bone density decreased [Unknown]
  - Osteonecrosis [Unknown]
  - Ankle fracture [Recovered/Resolved]
  - Renal failure [Unknown]
  - Spinal compression fracture [Not Recovered/Not Resolved]
  - Humerus fracture [Not Recovered/Not Resolved]
  - Rib fracture [Recovered/Resolved]

NARRATIVE: CASE EVENT DATE: 20160502
